FAERS Safety Report 8947928 (Version 3)
Quarter: 2013Q1

REPORT INFORMATION
  Report Type: Spontaneous
  Country: US (occurrence: None)
  Receive Date: 20121127
  Receipt Date: 20121214
  Transmission Date: 20140127
  Serious: Yes (Hospitalization)
  Sender: FDA-Public Use
  Company Number: KAD201211-000495

PATIENT
  Age: 60 Year
  Sex: Male
  Weight: 158.8 kg

DRUGS (9)
  1. RIBASPHERE RIBAPAK (RIBAVIRIN) [Suspect]
     Indication: HEPATITIS C
     Dosage: 1200 (UNITS NOT PROVIDED) DAILY; STRENGTH: 600 (UNITS NOT PROVIDE), ORAL
     Route: 048
  2. PEGASYS [Suspect]
     Indication: HEPATITIS C
     Dosage: 180 (UNITS NOT PROVIDED): WEEKLY, SUBCUTANEOUS
     Route: 058
  3. INCIVEK [Suspect]
     Indication: HEPATITIS C
     Dosage: 1125 (UNITS NOT PROVIDE) DAILY; STRENGTH: 375 (UNITS NOT PROVIDED), ORAL
     Route: 048
  4. LISINOPRIL [Concomitant]
  5. K-DUR [Concomitant]
  6. NOVOLOG [Concomitant]
  7. LANTUS [Concomitant]
  8. LASIX [Concomitant]
  9. SYNTHROID [Concomitant]

REACTIONS (17)
  - Cardiac failure congestive [None]
  - Blister [None]
  - Nausea [None]
  - Influenza like illness [None]
  - Feeling abnormal [None]
  - Anaemia [None]
  - Rash pruritic [None]
  - Rash erythematous [None]
  - Oral disorder [None]
  - Dyspnoea [None]
  - Flatulence [None]
  - Pain [None]
  - Gait disturbance [None]
  - Rash [None]
  - Scratch [None]
  - Fatigue [None]
  - Abdominal distension [None]
